FAERS Safety Report 12395757 (Version 1)
Quarter: 2016Q2

REPORT INFORMATION
  Report Type: Spontaneous
  Country: US (occurrence: US)
  Receive Date: 20160523
  Receipt Date: 20160523
  Transmission Date: 20160815
  Serious: No
  Sender: FDA-Public Use
  Company Number: US-BANPHARM-20164631

PATIENT
  Age: 65 Year
  Sex: Female
  Weight: 68.49 kg

DRUGS (1)
  1. MOTRIN IB [Suspect]
     Active Substance: IBUPROFEN
     Indication: BACK PAIN
     Dosage: 1 OR 2 DF, Q4 -6H,
     Route: 048

REACTIONS (1)
  - Drug ineffective [Unknown]
